FAERS Safety Report 23391396 (Version 2)
Quarter: 2024Q1

REPORT INFORMATION
  Report Type: Spontaneous
  Country: GB (occurrence: GB)
  Receive Date: 20240111
  Receipt Date: 20240118
  Transmission Date: 20240410
  Serious: Yes (Other)
  Sender: FDA-Public Use
  Company Number: GB-SUN PHARMACEUTICAL INDUSTRIES LTD-2023RR-426222

PATIENT
  Sex: Male

DRUGS (3)
  1. SERTRALINE [Suspect]
     Active Substance: SERTRALINE HYDROCHLORIDE
     Indication: Product used for unknown indication
     Dosage: 50 MILLIGRAM TABLET, OVER 4 WEEKS
     Route: 048
     Dates: start: 202309
  2. Candescartan [Concomitant]
     Indication: Product used for unknown indication
     Dosage: 2 MILLIGRAM, UNK
  3. ESCITALOPRAM [Concomitant]
     Active Substance: ESCITALOPRAM OXALATE
     Indication: Product used for unknown indication
     Dosage: UNK
     Route: 065

REACTIONS (4)
  - Agitation [Unknown]
  - Mood altered [Unknown]
  - Self-injurious ideation [Unknown]
  - Suicidal ideation [Unknown]
